FAERS Safety Report 10579791 (Version 1)
Quarter: 2014Q4

REPORT INFORMATION
  Report Type: Spontaneous
  Country: IT (occurrence: IT)
  Receive Date: 20141112
  Receipt Date: 20141112
  Transmission Date: 20150529
  Serious: Yes (Hospitalization, Other)
  Sender: FDA-Public Use
  Company Number: IT-ASTRAZENECA-2014SE83808

PATIENT
  Age: 24902 Day
  Sex: Female

DRUGS (4)
  1. ATENOLOL. [Suspect]
     Active Substance: ATENOLOL
     Indication: HYPERTENSION
     Route: 048
     Dates: start: 20100101, end: 20140511
  2. LASIX [Suspect]
     Active Substance: FUROSEMIDE
     Route: 048
  3. BENTELAN (BETAMETHASONE) [Concomitant]
  4. METHOTREXATE [Concomitant]
     Active Substance: METHOTREXATE

REACTIONS (4)
  - Interstitial lung disease [Unknown]
  - Orthostatic hypotension [Recovering/Resolving]
  - Intentional product misuse [Unknown]
  - Syncope [Recovering/Resolving]

NARRATIVE: CASE EVENT DATE: 20140511
